FAERS Safety Report 8925631 (Version 1)
Quarter: 2012Q4

REPORT INFORMATION
  Report Type: 
  Country: DE (occurrence: JP)
  Receive Date: 20121126
  Receipt Date: 20121126
  Transmission Date: 20130627
  Serious: Yes (Other)
  Sender: FDA-Public Use
  Company Number: JP-BRISTOL-MYERS SQUIBB COMPANY-17144965

PATIENT
  Age: 3 None
  Sex: Female

DRUGS (1)
  1. METGLUCO [Suspect]
     Route: 048

REACTIONS (5)
  - Pyelonephritis [Unknown]
  - Pyrexia [Unknown]
  - Tremor [Unknown]
  - Pollakiuria [Unknown]
  - Nausea [Unknown]
